FAERS Safety Report 8398343-2 (Version None)
Quarter: 2012Q2

REPORT INFORMATION
  Report Type: 
  Country: None (occurrence: None)
  Receive Date: 20120531
  Receipt Date: 20120522
  Transmission Date: 20120825
  Serious: Yes (Other)
  Sender: FDA-Public Use
  Company Number: US-JNJFOC-20120517353

PATIENT
  Sex: Female
  Weight: 68.04 kg

DRUGS (9)
  1. DURAGESIC-100 [Suspect]
     Indication: BACK PAIN
     Route: 062
     Dates: start: 19970101
  2. LISINOPRIL [Concomitant]
     Indication: BLOOD PRESSURE
     Route: 048
  3. PROCARDIA XL [Concomitant]
     Indication: BLOOD PRESSURE
     Route: 048
  4. DURAGESIC-100 [Suspect]
     Route: 062
     Dates: start: 20110101
  5. HYTRIN [Concomitant]
     Indication: BLOOD PRESSURE
     Route: 048
  6. BACLOFEN [Concomitant]
     Indication: MUSCLE SPASMS
     Route: 048
  7. DIAZEPAM [Concomitant]
     Indication: MUSCLE SPASMS
     Route: 048
  8. NEXIUM [Concomitant]
     Indication: GASTRIC DISORDER
     Route: 048
  9. FENTANYL-100 [Concomitant]
     Indication: BACK PAIN
     Route: 062
     Dates: end: 20110101

REACTIONS (1)
  - WEIGHT INCREASED [None]
